FAERS Safety Report 6554269-8 (Version None)
Quarter: 2010Q1

REPORT INFORMATION
  Report Type: 
  Country: None (occurrence: None)
  Receive Date: 20100127
  Receipt Date: 20100115
  Transmission Date: 20100710
  Serious: Yes (Other)
  Sender: FDA-Public Use
  Company Number: GB-WATSON-2010-00671

PATIENT

DRUGS (4)
  1. CITALOPRAM HYDROBROMIDE [Suspect]
     Indication: DEPRESSION
     Dosage: 20 MG, UNKNOWN
     Route: 048
     Dates: start: 20091224, end: 20091224
  2. RASAGILINE [Suspect]
     Indication: PARKINSON'S DISEASE
     Dosage: 1 MG, UNKNOWN
     Route: 048
     Dates: start: 20060208
  3. LEVOTHYROXINE SODIUM [Concomitant]
     Indication: HYPOTHYROIDISM
     Dosage: 150 MCG, UNKNOWN
     Route: 048
     Dates: start: 20040101
  4. ROTIGOTINE [Concomitant]
     Indication: PARKINSON'S DISEASE
     Dosage: 8 MG, 2 / 24HOURS
     Route: 062
     Dates: start: 20070219

REACTIONS (4)
  - CONFUSIONAL STATE [None]
  - DYSSTASIA [None]
  - NEUROTOXICITY [None]
  - VOMITING [None]
